FAERS Safety Report 11205509 (Version 1)
Quarter: 2015Q2

REPORT INFORMATION
  Report Type: Spontaneous
  Country: CN (occurrence: None)
  Receive Date: 20150617
  Receipt Date: 20150617
  Transmission Date: 20150821
  Serious: Yes (Death)
  Sender: FDA-Public Use
  Company Number: FK201502761

PATIENT

DRUGS (3)
  1. DEXAMETHASONE INJECTION (MANUFACTURER UNKNOWN) (DEXAMETHASONE SODIUM PHOSPHATE) (DEXAMETHASONE SODIUM PHOSPHATE) [Suspect]
     Active Substance: DEXAMETHASONE SODIUM PHOSPHATE
     Indication: HAEMANGIOMA-THROMBOCYTOPENIA SYNDROME
     Route: 041
  2. PREDNISONE (PREDNISONE) [Suspect]
     Active Substance: PREDNISONE
     Indication: HAEMANGIOMA-THROMBOCYTOPENIA SYNDROME
     Route: 048
  3. VINCRISTINE (MANUFACTURER UNKNOWN) (VINCRISTINE SULFATE) (VINCRISTINE SULFATE)? [Suspect]
     Active Substance: VINCRISTINE
     Indication: CHEMOTHERAPY

REACTIONS (2)
  - Post procedural infection [None]
  - Respiratory tract infection fungal [None]
